FAERS Safety Report 8989354 (Version 2)
Quarter: 2013Q2

REPORT INFORMATION
  Report Type: Report from Study
  Country: JP (occurrence: JP)
  Receive Date: 20121227
  Receipt Date: 20130531
  Transmission Date: 20140414
  Serious: Yes (Other)
  Sender: FDA-Public Use
  Company Number: JP-AMGEN-JPNCT2012083237

PATIENT
  Age: 86 Year
  Sex: Female
  Weight: 37 kg

DRUGS (18)
  1. DARBEPOETIN ALFA [Suspect]
     Indication: NEPHROGENIC ANAEMIA
     Dosage: 20 MUG, Q4WK
     Route: 058
     Dates: start: 20111118, end: 20120323
  2. DARBEPOETIN ALFA [Suspect]
     Dosage: 30 MUG, QD
     Route: 058
     Dates: start: 20120406, end: 20120406
  3. DARBEPOETIN ALFA [Suspect]
     Dosage: 30 MUG, Q4WK
     Route: 058
     Dates: start: 20120521, end: 20120720
  4. DARBEPOETIN ALFA [Suspect]
     Dosage: 30 MUG, QD
     Route: 058
     Dates: start: 20120820, end: 20120820
  5. DARBEPOETIN ALFA [Suspect]
     Dosage: 20 MUG, QD
     Route: 058
     Dates: start: 20120924, end: 20120924
  6. DARBEPOETIN ALFA [Suspect]
     Dosage: 20 MUG, QD
     Route: 058
     Dates: start: 20121015, end: 20121015
  7. DARBEPOETIN ALFA [Suspect]
     Dosage: 15 MUG, QD
     Route: 058
     Dates: start: 20121112
  8. FEBURIC [Concomitant]
     Dosage: UNK
     Route: 048
  9. NORVASC [Concomitant]
     Dosage: UNK
  10. ITOROL [Concomitant]
     Dosage: UNK
     Route: 048
  11. NU-LOTAN [Concomitant]
     Dosage: UNK
     Route: 048
  12. MEVALOTIN [Concomitant]
     Dosage: UNK
     Route: 048
  13. LASIX [Concomitant]
     Dosage: UNK
     Route: 048
  14. URALYT [Concomitant]
     Dosage: UNK
     Route: 048
  15. MICARDIS [Concomitant]
     Dosage: UNK
     Route: 048
  16. BAYASPIRIN [Concomitant]
     Dosage: UNK
     Route: 048
  17. SIMVASTATIN [Concomitant]
     Dosage: UNK
  18. SIMVASTATIN [Concomitant]
     Dosage: UNK
     Route: 048

REACTIONS (3)
  - Loss of consciousness [Recovered/Resolved]
  - Aortic aneurysm [Not Recovered/Not Resolved]
  - Hypertension [Recovered/Resolved]
